FAERS Safety Report 4679696-5 (Version None)
Quarter: 2005Q2

REPORT INFORMATION
  Report Type: 
  Country: None (occurrence: None)
  Receive Date: 20050531
  Receipt Date: 20050516
  Transmission Date: 20051028
  Serious: Yes (Other)
  Sender: FDA-Public Use
  Company Number: 2005075863

PATIENT
  Age: 68 Year
  Sex: Male
  Weight: 9.0719 kg

DRUGS (5)
  1. ZOLOFT [Suspect]
     Indication: CRYING
  2. ZOLOFT [Suspect]
     Indication: DEPRESSION
  3. SINEMET [Concomitant]
  4. REQUIP [Concomitant]
  5. LEVOTHYROXINE SODIUM [Concomitant]

REACTIONS (4)
  - ARTERIAL OCCLUSIVE DISEASE [None]
  - CARDIAC FIBRILLATION [None]
  - CRYING [None]
  - DEPRESSION [None]
